FAERS Safety Report 18148483 (Version 1)
Quarter: 2020Q3

REPORT INFORMATION
  Report Type: Spontaneous
  Country: US (occurrence: US)
  Receive Date: 20200813
  Receipt Date: 20200813
  Transmission Date: 20201103
  Serious: Yes (Hospitalization)
  Sender: FDA-Public Use
  Company Number: US-GE HEALTHCARE LIFE SCIENCES-2020CSU003506

PATIENT
  Age: 74 Year
  Sex: Female

DRUGS (2)
  1. OMNIPAQUE [Suspect]
     Active Substance: IOHEXOL
     Indication: SPINAL MYELOGRAM
     Dosage: UNK, SINGLE
     Route: 065
  2. OMNIPAQUE [Suspect]
     Active Substance: IOHEXOL
     Indication: CEREBROSPINAL FLUID LEAKAGE

REACTIONS (2)
  - Imaging procedure abnormal [Recovered/Resolved]
  - Facial asymmetry [Unknown]
